FAERS Safety Report 6602681-0 (Version None)
Quarter: 2010Q1

REPORT INFORMATION
  Report Type: 
  Country: None (occurrence: None)
  Receive Date: 20100218
  Receipt Date: 20100209
  Transmission Date: 20100710
  Serious: Yes (Death, Hospitalization)
  Sender: FDA-Public Use
  Company Number: 20108172

PATIENT
  Age: 40 Year
  Sex: Male

DRUGS (1)
  1. LIORESAL [Suspect]
     Indication: MUSCLE SPASTICITY
     Dosage: INTRATHECAL
     Route: 037

REACTIONS (4)
  - IMPLANT SITE HAEMATOMA [None]
  - IMPLANT SITE HAEMORRHAGE [None]
  - INFECTION [None]
  - POST PROCEDURAL HAEMORRHAGE [None]
